FAERS Safety Report 20706408 (Version 1)
Quarter: 2022Q2

REPORT INFORMATION
  Report Type: Spontaneous
  Country: CN (occurrence: CN)
  Receive Date: 20220413
  Receipt Date: 20220413
  Transmission Date: 20220721
  Serious: Yes (Other)
  Sender: FDA-Public Use
  Company Number: CN-JNJFOC-20220412488

PATIENT
  Age: 78 Year
  Sex: Female
  Weight: 67 kg

DRUGS (2)
  1. DARZALEX [Suspect]
     Active Substance: DARATUMUMAB
     Indication: Plasma cell myeloma
     Route: 041
     Dates: start: 20220310, end: 20220310
  2. DARZALEX [Suspect]
     Active Substance: DARATUMUMAB
     Route: 041
     Dates: start: 20220310, end: 20220310

REACTIONS (6)
  - Tachypnoea [Recovering/Resolving]
  - Cyanosis [Recovering/Resolving]
  - Bradycardia [Recovering/Resolving]
  - Infusion related reaction [Recovering/Resolving]
  - Chest discomfort [Recovering/Resolving]
  - Hypotension [Recovering/Resolving]

NARRATIVE: CASE EVENT DATE: 20220310
